FAERS Safety Report 22218138 (Version 1)
Quarter: 2023Q2

REPORT INFORMATION
  Report Type: Spontaneous
  Country: US (occurrence: US)
  Receive Date: 20230417
  Receipt Date: 20230417
  Transmission Date: 20230721
  Serious: Yes (Hospitalization, Other)
  Sender: FDA-Public Use
  Company Number: US-MLMSERVICE-20230327-4191248-2

PATIENT
  Age: 29 Year
  Sex: Male
  Weight: 81.9 kg

DRUGS (7)
  1. SOLU-MEDROL [Suspect]
     Active Substance: METHYLPREDNISOLONE SODIUM SUCCINATE
     Indication: Evidence based treatment
     Dosage: 125 MG
     Route: 042
     Dates: start: 20211014, end: 20211014
  2. SOLU-MEDROL [Suspect]
     Active Substance: METHYLPREDNISOLONE SODIUM SUCCINATE
     Indication: Angioedema
     Dosage: 40 MG, CYCLIC (Q12H, ONCE EVERY 12 HOURS)
     Dates: start: 20210930, end: 20211002
  3. DECADRON (DEXAMETHASONE SODIUM PHOSPHATE) [Suspect]
     Active Substance: DEXAMETHASONE SODIUM PHOSPHATE
     Indication: Peritonsillar abscess
     Dosage: 10 MG
     Route: 042
     Dates: start: 20210911, end: 20210911
  4. DECADRON (DEXAMETHASONE SODIUM PHOSPHATE) [Suspect]
     Active Substance: DEXAMETHASONE SODIUM PHOSPHATE
     Indication: Tonsillar exudate
  5. EPINEPHRINE [Concomitant]
     Active Substance: EPINEPHRINE
     Indication: Kaposi^s sarcoma AIDS related
     Dosage: UNK
     Route: 030
     Dates: start: 2021
  6. DIPHENHYDRAMINE HYDROCHLORIDE [Concomitant]
     Active Substance: DIPHENHYDRAMINE HYDROCHLORIDE
     Indication: Kaposi^s sarcoma AIDS related
     Dosage: UNK
  7. FAMOTIDINE [Concomitant]
     Active Substance: FAMOTIDINE
     Indication: Kaposi^s sarcoma AIDS related
     Dosage: UNK

REACTIONS (2)
  - Kaposi^s sarcoma [Unknown]
  - Condition aggravated [Unknown]
